FAERS Safety Report 7674976-3 (Version None)
Quarter: 2011Q3

REPORT INFORMATION
  Report Type: 
  Country: None (occurrence: None)
  Receive Date: 20110810
  Receipt Date: 20110803
  Transmission Date: 20111222
  Serious: Yes (Hospitalization, Other)
  Sender: FDA-Public Use
  Company Number: PHEH2009US09836

PATIENT
  Sex: Male

DRUGS (12)
  1. ZOFRAN [Concomitant]
  2. ULTRAM [Concomitant]
  3. PRAMIPEXOLE DIHYDROCHLORIDE [Concomitant]
  4. ANZEMET [Concomitant]
  5. AMBIEN [Concomitant]
  6. VASOTEC [Concomitant]
  7. CLONIDINE [Concomitant]
  8. ZOMETA [Suspect]
  9. PAXIL [Concomitant]
  10. DIOVAN [Concomitant]
  11. SINEMET [Concomitant]
  12. CIPROFLOXACIN [Concomitant]

REACTIONS (19)
  - URINARY TRACT OBSTRUCTION [None]
  - HIATUS HERNIA [None]
  - HALLUCINATION [None]
  - OSTEONECROSIS OF JAW [None]
  - PAIN [None]
  - DECREASED INTEREST [None]
  - HYPERTENSION [None]
  - BENIGN PROSTATIC HYPERPLASIA [None]
  - NOCTURIA [None]
  - HYPERTONIC BLADDER [None]
  - RENAL CYST [None]
  - AORTIC DISORDER [None]
  - GENERAL PHYSICAL HEALTH DETERIORATION [None]
  - ANXIETY [None]
  - CHEST PAIN [None]
  - PARKINSON'S DISEASE [None]
  - DYSPNOEA [None]
  - THROMBOCYTOPENIA [None]
  - FALL [None]
